FAERS Safety Report 13495162 (Version 2)
Quarter: 2017Q2

REPORT INFORMATION
  Report Type: Spontaneous
  Country: US (occurrence: US)
  Receive Date: 20170428
  Receipt Date: 20170428
  Transmission Date: 20170830
  Serious: Yes (Hospitalization, Other)
  Sender: FDA-Public Use
  Company Number: US-WEST-WARD PHARMACEUTICALS CORP.-US-H14001-17-00235

PATIENT
  Age: 88 Year
  Sex: Female

DRUGS (4)
  1. BUPIVACAINE. [Concomitant]
     Active Substance: BUPIVACAINE
     Indication: PRODUCT USED FOR UNKNOWN INDICATION
     Route: 037
  2. BUPIVACAINE. [Concomitant]
     Active Substance: BUPIVACAINE
     Route: 037
     Dates: start: 20170111
  3. INFUMORPH [Suspect]
     Active Substance: MORPHINE SULFATE
     Indication: LUMBAR RADICULOPATHY
  4. INFUMORPH [Suspect]
     Active Substance: MORPHINE SULFATE
     Indication: PAIN
     Route: 037

REACTIONS (5)
  - Coma [Recovered/Resolved]
  - Overdose [Recovered/Resolved]
  - Terminal state [Recovered/Resolved]
  - Hypertension [Recovered/Resolved]
  - Malaise [Recovered/Resolved]

NARRATIVE: CASE EVENT DATE: 20170112
